FAERS Safety Report 17333231 (Version 2)
Quarter: 2020Q1

REPORT INFORMATION
  Report Type: Spontaneous
  Country: US (occurrence: US)
  Receive Date: 20200128
  Receipt Date: 20200218
  Transmission Date: 20200409
  Serious: No
  Sender: FDA-Public Use
  Company Number: US-AMGEN-USASP2020011193

PATIENT
  Age: 64 Year
  Sex: Female

DRUGS (3)
  1. REPATHA [Suspect]
     Active Substance: EVOLOCUMAB
     Indication: PRODUCT USED FOR UNKNOWN INDICATION
     Dosage: 140 MILLIGRAM
     Route: 065
     Dates: start: 2018
  2. REPATHA [Suspect]
     Active Substance: EVOLOCUMAB
     Dosage: UNK
     Route: 065
  3. IMITREX [Concomitant]
     Active Substance: SUMATRIPTAN SUCCINATE
     Dosage: UNK
     Route: 065

REACTIONS (3)
  - Device use error [Unknown]
  - Injection site pain [Unknown]
  - Wrong technique in product usage process [Unknown]

NARRATIVE: CASE EVENT DATE: 20200119
